FAERS Safety Report 23183376 (Version 3)
Quarter: 2024Q4

REPORT INFORMATION
  Report Type: Spontaneous
  Country: CA (occurrence: CA)
  Receive Date: 20231114
  Receipt Date: 20241226
  Transmission Date: 20250115
  Serious: Yes (Other)
  Sender: PFIZER
  Company Number: CA-PFIZER INC-202300147381

PATIENT
  Age: 39 Year
  Sex: Female

DRUGS (7)
  1. RUXIENCE [Suspect]
     Active Substance: RITUXIMAB-PVVR
     Indication: Granulomatosis with polyangiitis
     Dosage: 1 G, 2 WEEKS APART
     Route: 042
     Dates: start: 20230608, end: 20230622
  2. RUXIENCE [Suspect]
     Active Substance: RITUXIMAB-PVVR
     Dosage: 500 MG, EVERY 6 MONTH
     Route: 042
     Dates: start: 20240103
  3. RUXIENCE [Suspect]
     Active Substance: RITUXIMAB-PVVR
     Dosage: 500 MG, EVERY 6 MONTH
     Route: 042
     Dates: start: 20240704
  4. FOLIC ACID [Concomitant]
     Active Substance: FOLIC ACID
     Dosage: UNK
  5. METHOTREXATE [Concomitant]
     Active Substance: METHOTREXATE
     Indication: Granulomatosis with polyangiitis
     Dosage: 25 MG, WEEKLY
  6. NADOLOL [Concomitant]
     Active Substance: NADOLOL
     Dosage: 80 MG
  7. PREDNISONE [Concomitant]
     Active Substance: PREDNISONE
     Dosage: UNK, AS NEEDED

REACTIONS (7)
  - Thrombosis [Recovered/Resolved]
  - Off label use [Unknown]
  - Urticaria [Unknown]
  - Ovarian cyst [Not Recovered/Not Resolved]
  - Infusion site erythema [Recovered/Resolved]
  - Infusion site rash [Recovered/Resolved]
  - Rash erythematous [Unknown]

NARRATIVE: CASE EVENT DATE: 20230601
